FAERS Safety Report 7909908-3 (Version None)
Quarter: 2011Q4

REPORT INFORMATION
  Report Type: 
  Country: None (occurrence: None)
  Receive Date: 20111111
  Receipt Date: 20111102
  Transmission Date: 20120403
  Serious: Yes (Other)
  Sender: FDA-Public Use
  Company Number: BR-JNJFOC-20110804359

PATIENT
  Age: 44 Year
  Sex: Female
  Weight: 45 kg

DRUGS (8)
  1. REMICADE [Suspect]
     Indication: RHEUMATOID ARTHRITIS
     Route: 042
  2. REMICADE [Suspect]
     Dosage: 4TH INFUSION
     Route: 042
  3. METHOTREXATE [Concomitant]
     Route: 048
  4. REMICADE [Suspect]
     Dosage: 5TH INFUSION
     Route: 042
  5. TENOXICAM [Concomitant]
     Route: 048
  6. FOLIC ACID [Concomitant]
     Indication: ANAEMIA
     Route: 048
  7. OMEPRAZOLE [Concomitant]
     Indication: DYSPEPSIA
     Route: 048
  8. PREDNISONE TAB [Concomitant]
     Route: 048

REACTIONS (5)
  - IRON DEFICIENCY ANAEMIA [None]
  - DEPRESSION [None]
  - DECREASED APPETITE [None]
  - ARTHRALGIA [None]
  - NAIL BED INFECTION [None]
